FAERS Safety Report 6502553-6 (Version None)
Quarter: 2009Q4

REPORT INFORMATION
  Report Type: 
  Country: None (occurrence: None)
  Receive Date: 20091217
  Receipt Date: 20091211
  Transmission Date: 20100525
  Serious: Yes (Other)
  Sender: FDA-Public Use
  Company Number: US-RB-026884-09

PATIENT
  Sex: Male

DRUGS (1)
  1. MUCINEX DM [Suspect]
     Dosage: TOOK 1 TO 2 TABLETS PER DAY FOR 4 DAYS
     Route: 048
     Dates: start: 20091207

REACTIONS (1)
  - LIP SWELLING [None]
